FAERS Safety Report 5310446-5 (Version None)
Quarter: 2007Q2

REPORT INFORMATION
  Report Type: 
  Country: None (occurrence: None)
  Receive Date: 20070427
  Receipt Date: 20070417
  Transmission Date: 20071010
  Serious: Yes (Hospitalization)
  Sender: FDA-Public Use
  Company Number: US-GENENTECH-236791

PATIENT
  Age: 52 Year
  Sex: Male

DRUGS (5)
  1. AVASTIN [Suspect]
     Indication: ADENOCARCINOMA
     Dosage: 5 MG/KG, Q2W
     Route: 042
     Dates: start: 20061013
  2. COUMADIN [Concomitant]
     Indication: DRUG USE FOR UNKNOWN INDICATION
  3. FLUOROURACIL [Concomitant]
     Indication: ADENOCARCINOMA
  4. LEUCOVORIN CALCIUM [Concomitant]
     Indication: ADENOCARCINOMA
  5. OXALIPLATIN [Concomitant]
     Indication: ADENOCARCINOMA

REACTIONS (1)
  - INTERNATIONAL NORMALISED RATIO INCREASED [None]
